FAERS Safety Report 11235877 (Version 1)
Quarter: 2015Q3

REPORT INFORMATION
  Report Type: Report from Study
  Country: US (occurrence: US)
  Receive Date: 20150702
  Receipt Date: 20150702
  Transmission Date: 20151125
  Serious: Yes (Hospitalization, Other)
  Sender: FDA-Public Use
  Company Number: US-BAXALTA-2015BLT000093

PATIENT

DRUGS (2)
  1. HUMAN NORMAL IMMUNOGLOBULIN; LIQUID [Suspect]
     Active Substance: HUMAN IMMUNOGLOBULIN G
     Indication: PRIMARY IMMUNODEFICIENCY SYNDROME
     Dosage: 1X A WEEK
     Route: 042
  2. HIZENTRA [Suspect]
     Active Substance: HUMAN IMMUNOGLOBULIN G
     Indication: PRIMARY IMMUNODEFICIENCY SYNDROME
     Dosage: 1X A WEEK
     Route: 058

REACTIONS (14)
  - Nephrolithiasis [Unknown]
  - Escherichia infection [Unknown]
  - Ovarian enlargement [Unknown]
  - Rash [Unknown]
  - Weight increased [Unknown]
  - Fatigue [Unknown]
  - Bone disorder [Unknown]
  - Sleep apnoea syndrome [Unknown]
  - Pancreatolithiasis [Unknown]
  - Respiratory syncytial virus infection [Unknown]
  - Injection site mass [Unknown]
  - Pancreatitis acute [Unknown]
  - Arthropathy [Unknown]
  - Back disorder [Unknown]
